FAERS Safety Report 15041773 (Version 1)
Quarter: 2018Q2

REPORT INFORMATION
  Report Type: Spontaneous
  Country: US (occurrence: US)
  Receive Date: 20180531
  Receipt Date: 20180531
  Transmission Date: 20180711
  Serious: Yes (Hospitalization)
  Sender: FDA-Public Use
  Company Number: None

PATIENT
  Age: 18 Year
  Sex: Male
  Weight: 83.8 kg

DRUGS (4)
  1. VINCRISTINE SULFATE. [Suspect]
     Active Substance: VINCRISTINE SULFATE
     Dates: end: 20180403
  2. METHOTREXATE. [Suspect]
     Active Substance: METHOTREXATE
     Dates: end: 20180501
  3. PREDNISONE. [Suspect]
     Active Substance: PREDNISONE
     Dates: end: 20180407
  4. MERCAPTOPURINE. [Suspect]
     Active Substance: MERCAPTOPURINE
     Dates: end: 20180507

REACTIONS (3)
  - Hyperbilirubinaemia [None]
  - Vomiting [None]
  - Hepatic function abnormal [None]

NARRATIVE: CASE EVENT DATE: 20180509
